FAERS Safety Report 16771760 (Version 1)
Quarter: 2019Q3

REPORT INFORMATION
  Report Type: Spontaneous
  Country: US (occurrence: US)
  Receive Date: 20190903
  Receipt Date: 20190903
  Transmission Date: 20191005
  Serious: Yes (Death)
  Sender: FDA-Public Use
  Company Number: None

PATIENT
  Age: 69 Year
  Sex: Male
  Weight: 95.6 kg

DRUGS (5)
  1. LIDOCAINE 2% 100 MG [Concomitant]
     Dates: start: 20190826, end: 20190826
  2. PHENYLEPHRINE 600 MCG [Concomitant]
     Dates: start: 20190826, end: 20190826
  3. PROPOFOL 200 MG [Concomitant]
     Dates: start: 20190826, end: 20190826
  4. HEPARIN SODIUM INJECTION, USP [Suspect]
     Active Substance: HEPARIN SODIUM
     Indication: THROMBECTOMY
     Dosage: ?          OTHER FREQUENCY:X 1 IN OR;?
     Route: 040
     Dates: start: 20190826, end: 20190826
  5. VANCOMYCIN 1500 MG [Concomitant]
     Dates: start: 20190826, end: 20190826

REACTIONS (7)
  - Shock haemorrhagic [None]
  - Tachycardia [None]
  - Blood pressure decreased [None]
  - Ventricular tachycardia [None]
  - Ventricular fibrillation [None]
  - Pulmonary oedema [None]
  - Procedural complication [None]

NARRATIVE: CASE EVENT DATE: 20190826
